FAERS Safety Report 13563320 (Version 2)
Quarter: 2017Q2

REPORT INFORMATION
  Report Type: Spontaneous
  Country: CO (occurrence: CO)
  Receive Date: 20170519
  Receipt Date: 20170525
  Transmission Date: 20170830
  Serious: Yes (Other)
  Sender: FDA-Public Use
  Company Number: CO-AMGEN-COLSP2017072920

PATIENT
  Age: 82 Year
  Sex: Male

DRUGS (2)
  1. VINCRISTINE [Concomitant]
     Active Substance: VINCRISTINE
  2. NPLATE [Suspect]
     Active Substance: ROMIPLOSTIM
     Indication: IMMUNE THROMBOCYTOPENIC PURPURA
     Dosage: UNK
     Route: 065
     Dates: start: 20150324, end: 20150819

REACTIONS (7)
  - Platelet count abnormal [Unknown]
  - Lymphoproliferative disorder [Unknown]
  - Bone pain [Unknown]
  - Pyrexia [Unknown]
  - Malaise [Unknown]
  - Respiratory symptom [Unknown]
  - Headache [Unknown]
